FAERS Safety Report 22229809 (Version 1)
Quarter: 2023Q2

REPORT INFORMATION
  Report Type: Report from Study
  Country: PT (occurrence: KR)
  Receive Date: 20230419
  Receipt Date: 20230419
  Transmission Date: 20230721
  Serious: Yes (Hospitalization, Other)
  Sender: FDA-Public Use
  Company Number: KR-ZBN-001-PMS-S37007-01

PATIENT
  Sex: Female
  Weight: 33 kg

DRUGS (12)
  1. ESLICARBAZEPINE ACETATE [Suspect]
     Active Substance: ESLICARBAZEPINE ACETATE
     Indication: Epilepsy
     Dosage: 400 MILLIGRAM, 1X / DAY
     Route: 048
     Dates: start: 20221129, end: 20221226
  2. ESLICARBAZEPINE ACETATE [Suspect]
     Active Substance: ESLICARBAZEPINE ACETATE
     Dosage: 800 MILLIGRAM, 1X / DAY
     Route: 048
     Dates: start: 20221227, end: 20230211
  3. KEPPRA [Concomitant]
     Active Substance: LEVETIRACETAM
     Indication: Epilepsy
     Dosage: 1 DOSAGE FORM, 2X / DAY
     Route: 048
     Dates: start: 20220708
  4. KEPPRA [Concomitant]
     Active Substance: LEVETIRACETAM
     Indication: Epilepsy
     Dosage: 1 DOSAGE FORM, 2X / DAY
     Route: 048
     Dates: start: 20180906
  5. LAMICTAL [Concomitant]
     Active Substance: LAMOTRIGINE
     Indication: Epilepsy
     Dosage: 1 DOSAGE FORM, 2X / DAY
     Route: 048
     Dates: start: 20180906, end: 20230210
  6. LAMICTAL [Concomitant]
     Active Substance: LAMOTRIGINE
     Indication: Epilepsy
     Dosage: 1 DOSAGE FORM, 2X / DAY
     Route: 048
     Dates: start: 20180906, end: 20230210
  7. NEOPAT [Concomitant]
     Indication: Epilepsy
     Dosage: 1 DOSAGE FORM, 2X / DAY
     Route: 048
     Dates: start: 20180906
  8. CLOBAZAM [Concomitant]
     Active Substance: CLOBAZAM
     Indication: Epilepsy
     Dosage: 1 DOSAGE FORM, 2X / DAY
     Route: 048
     Dates: start: 20180906, end: 20230210
  9. CLOBAZAM [Concomitant]
     Active Substance: CLOBAZAM
     Dosage: 1.5 DOSAGE FORM, 2X / DAY
     Route: 048
     Dates: start: 20230211
  10. Levopect cr [Concomitant]
     Indication: Nasopharyngitis
     Dosage: 1 DOSAGE FORM, 2X / DAY
     Route: 048
     Dates: start: 20221129, end: 20221205
  11. ZADITEN [Concomitant]
     Active Substance: KETOTIFEN FUMARATE
     Indication: Nasopharyngitis
     Dosage: 1 DOSAGE FORM, 2X / DAY
     Route: 048
     Dates: start: 20221129, end: 20221205
  12. LAMICTAL [Concomitant]
     Active Substance: LAMOTRIGINE
     Indication: Epilepsy
     Dosage: 1 DOSAGE FORM, 2X / DAY
     Route: 048
     Dates: start: 20230211

REACTIONS (1)
  - Epilepsy [Recovered/Resolved]

NARRATIVE: CASE EVENT DATE: 20230210
